FAERS Safety Report 5800469-1 (Version None)
Quarter: 2008Q3

REPORT INFORMATION
  Report Type: 
  Country: None (occurrence: None)
  Receive Date: 20080703
  Receipt Date: 20080623
  Transmission Date: 20090109
  Serious: Yes (Other)
  Sender: FDA-Public Use
  Company Number: A0728797A

PATIENT
  Age: 61 Year
  Sex: Male
  Weight: 104.1 kg

DRUGS (6)
  1. AVODART [Suspect]
     Indication: DRUG USE FOR UNKNOWN INDICATION
     Dosage: .5MG PER DAY
     Route: 048
     Dates: start: 20080128, end: 20080505
  2. PLAVIX [Concomitant]
  3. ASPIRIN [Concomitant]
  4. LOTREL [Concomitant]
  5. ALLOPURINOL [Concomitant]
  6. LORCET-HD [Concomitant]

REACTIONS (4)
  - ALOPECIA [None]
  - FLANK PAIN [None]
  - NEPHROLITHIASIS [None]
  - SPINAL OSTEOARTHRITIS [None]
